FAERS Safety Report 9385947 (Version 1)
Quarter: 2013Q3

REPORT INFORMATION
  Report Type: Report from Study
  Country: US (occurrence: US)
  Receive Date: 20130705
  Receipt Date: 20130705
  Transmission Date: 20140515
  Serious: Yes (Other)
  Sender: FDA-Public Use
  Company Number: US-009507513-1306USA013771

PATIENT
  Age: 61 Year
  Sex: Female
  Weight: 101.13 kg

DRUGS (3)
  1. BOCEPREVIR [Suspect]
     Dosage: 200 MG, QD
     Route: 048
  2. RIBAVIRIN [Suspect]
     Indication: HEPATIC CIRRHOSIS
     Dosage: 600 MG, QD
     Route: 048
  3. PEGASYS [Suspect]
     Indication: HEPATITIS C
     Dosage: 180 MICROGRAM, QW
     Route: 058

REACTIONS (1)
  - Dyspnoea [Unknown]
